FAERS Safety Report 7315158-4 (Version None)
Quarter: 2011Q1

REPORT INFORMATION
  Report Type: 
  Country: None (occurrence: None)
  Receive Date: 20110225
  Receipt Date: 20110221
  Transmission Date: 20110831
  Serious: Yes (Death, Other)
  Sender: FDA-Public Use
  Company Number: JP-PFIZER INC-2011018047

PATIENT
  Age: 35 Year
  Sex: Male

DRUGS (5)
  1. LINEZOLID [Suspect]
     Indication: SEPSIS
     Dosage: UNK
     Route: 042
     Dates: start: 20091017, end: 20091027
  2. ZOSYN [Concomitant]
     Indication: SEPSIS
     Dosage: UNK
     Route: 042
     Dates: start: 20091008
  3. VANCOMYCIN HCL [Suspect]
     Dosage: UNK
     Route: 042
     Dates: start: 20091028, end: 20091031
  4. LINEZOLID [Suspect]
     Dosage: UNK
     Route: 042
     Dates: start: 20091101
  5. VANCOMYCIN HCL [Suspect]
     Indication: SEPSIS
     Dosage: AROUND 20 MICROG/ML
     Route: 042
     Dates: start: 20091010, end: 20091016

REACTIONS (5)
  - DRUG INEFFECTIVE [None]
  - PLATELET COUNT DECREASED [None]
  - SYSTEMIC CANDIDA [None]
  - CIRCULATORY COLLAPSE [None]
  - PNEUMOTHORAX [None]
